FAERS Safety Report 17274888 (Version 4)
Quarter: 2020Q1

REPORT INFORMATION
  Report Type: Spontaneous
  Country: JP (occurrence: JP)
  Receive Date: 20200116
  Receipt Date: 20200212
  Transmission Date: 20200409
  Serious: Yes (Other)
  Sender: FDA-Public Use
  Company Number: JP-009507513-2001JPN000854J

PATIENT
  Age: 76 Year
  Sex: Male

DRUGS (4)
  1. TENELIGLIPTIN HYDROBROMIDE [Concomitant]
     Active Substance: TENELIGLIPTIN HYDROBROMIDE ANHYDROUS
     Indication: TYPE 2 DIABETES MELLITUS
     Dosage: UNK
     Route: 065
  2. VILDAGLIPTIN [Concomitant]
     Active Substance: VILDAGLIPTIN
     Indication: DIABETES MELLITUS
     Dosage: UNK
     Route: 065
  3. REPAGLINIDE. [Concomitant]
     Active Substance: REPAGLINIDE
     Indication: TYPE 2 DIABETES MELLITUS
     Dosage: 1.5 MILLIGRAM, UNK
     Route: 065
  4. JANUVIA [Suspect]
     Active Substance: SITAGLIPTIN PHOSPHATE
     Indication: TYPE 2 DIABETES MELLITUS
     Dosage: UNK
     Route: 048
     Dates: start: 2011

REACTIONS (2)
  - Pancreatic mass [Unknown]
  - Pancreatitis chronic [Not Recovered/Not Resolved]

NARRATIVE: CASE EVENT DATE: 2018
